FAERS Safety Report 9720978 (Version 8)
Quarter: 2014Q2

REPORT INFORMATION
  Report Type: Report from Study
  Country: SK (occurrence: SK)
  Receive Date: 20131129
  Receipt Date: 20140617
  Transmission Date: 20141212
  Serious: Yes (Hospitalization, Disabling)
  Sender: FDA-Public Use
  Company Number: SK-UCBSA-104529

PATIENT
  Age: 75 Year
  Sex: Female
  Weight: 64 kg

DRUGS (17)
  1. ROTIGOTINE PD [Suspect]
     Indication: PARKINSON^S DISEASE
     Dosage: 8 MG, ONCE DAILY (QD)
     Route: 062
     Dates: start: 20110429
  2. ROTIGOTINE PD [Suspect]
     Dosage: 4 MG, ONCE DAILY (QD)
     Route: 062
     Dates: start: 20110422, end: 20110428
  3. PREDNISONE [Suspect]
     Indication: MYALGIA
     Dosage: 5 MG, ONCE DAILY (QD)
     Dates: start: 2009
  4. MICARDIS PLUS [Concomitant]
     Indication: HYPERTENSION
     Dosage: 40/12.5 MG
  5. IPATON [Concomitant]
     Indication: MYOCARDIAL ISCHAEMIA
     Dosage: 250 MG, 2X/DAY (BID)
     Dates: end: 20130620
  6. AKTIFERIN [Concomitant]
     Indication: ANAEMIA
     Dosage: 113.85 MG, ONCE DAILY (QD)
  7. PERITOL [Concomitant]
     Indication: DYSPEPSIA
     Dosage: 4 MG, AS NEEDED (PRN)
  8. LACIPIL [Concomitant]
     Indication: HYPERTENSION
     Dosage: 4 MG, ONCE DAILY (QD)
  9. NOLPAZA [Concomitant]
     Indication: CHRONIC GASTRITIS
     Dosage: 20 MG, 2X/DAY (BID)
  10. DEGAN [Concomitant]
     Indication: DYSPEPSIA
     Dosage: 10 MG, AS NEEDED (PRN)
  11. ACIDUM FOLICUM [Concomitant]
     Indication: MYALGIA
     Dosage: 20 MG, WEEKLY (QW)
     Dates: start: 2009
  12. METHOTREXAT [Concomitant]
     Indication: MYALGIA
     Dosage: 12.5 MG; OTHER ONCE WEEKLY, SATURDAY 2-2-1 TBL, A 2.5 MG
     Dates: start: 2009
  13. RISENDROS [Concomitant]
     Indication: OSTEOPOROSIS POSTMENOPAUSAL
     Dosage: 35 MG, WEEKLY (QW)
     Dates: start: 2009
  14. ALPHA D3 [Concomitant]
     Indication: OSTEOPOROSIS POSTMENOPAUSAL
     Dosage: 1 OTHER MICROGRAM
  15. VITACALCIN [Concomitant]
     Indication: OSTEOPOROSIS POSTMENOPAUSAL
     Dosage: .695 MG, 2X/DAY (BID)
     Dates: start: 2009
  16. BETAHISTIN ACTAVIS [Concomitant]
     Indication: VERTIGO
     Dosage: 12 MG, 2X/DAY (BID)
     Dates: start: 20110420
  17. TANAKAN [Concomitant]
     Indication: VERTIGO
     Dosage: 40 MG, ONCE DAILY (QD)
     Dates: start: 20110420

REACTIONS (3)
  - Subdural haematoma [Recovered/Resolved with Sequelae]
  - Skull fracture [Recovered/Resolved]
  - Fall [Recovered/Resolved with Sequelae]
